FAERS Safety Report 9790692 (Version 2)
Quarter: 2014Q1

REPORT INFORMATION
  Report Type: Spontaneous
  Country: TR (occurrence: TR)
  Receive Date: 20131231
  Receipt Date: 20140107
  Transmission Date: 20141002
  Serious: Yes (Other)
  Sender: FDA-Public Use
  Company Number: TR-PFIZER INC-2013373596

PATIENT
  Sex: 0

DRUGS (1)
  1. XALKORI [Suspect]
     Dosage: UNK

REACTIONS (1)
  - Pericarditis [Unknown]
